FAERS Safety Report 13419794 (Version 12)
Quarter: 2022Q4

REPORT INFORMATION
  Report Type: Spontaneous
  Country: US (occurrence: US)
  Receive Date: 20170407
  Receipt Date: 20221229
  Transmission Date: 20230112
  Serious: Yes (Hospitalization, Other)
  Sender: FDA-Public Use
  Company Number: US-PFIZER INC-2017154081

PATIENT
  Age: 57 Year
  Sex: Female
  Weight: 47 kg

DRUGS (1)
  1. XELJANZ XR [Suspect]
     Active Substance: TOFACITINIB CITRATE
     Indication: Rheumatoid arthritis
     Dosage: 11 MG, 1X/DAY (AT NIGHT)
     Route: 048
     Dates: start: 201702

REACTIONS (7)
  - Joint destruction [Unknown]
  - Joint injury [Unknown]
  - Upper limb fracture [Unknown]
  - Upper limb fracture [Unknown]
  - Nausea [Not Recovered/Not Resolved]
  - Feeling abnormal [Unknown]
  - Tooth infection [Unknown]

NARRATIVE: CASE EVENT DATE: 20170201
